FAERS Safety Report 4675726-5 (Version None)
Quarter: 2005Q2

REPORT INFORMATION
  Report Type: 
  Country: None (occurrence: None)
  Receive Date: 20050527
  Receipt Date: 20050225
  Transmission Date: 20051028
  Serious: No
  Sender: FDA-Public Use
  Company Number: US-BRISTOL-MYERS SQUIBB COMPANY-12877536

PATIENT
  Age: 71 Year
  Sex: Male
  Weight: 108 kg

DRUGS (2)
  1. ERBITUX [Suspect]
     Indication: LARYNGEAL CANCER
     Route: 042
     Dates: start: 20050216, end: 20050216
  2. BENADRYL [Concomitant]
     Indication: PREMEDICATION
     Route: 042
     Dates: start: 20050216, end: 20050216

REACTIONS (1)
  - CHILLS [None]
